FAERS Safety Report 9786503 (Version 2)
Quarter: 2014Q1

REPORT INFORMATION
  Report Type: Spontaneous
  Country: US (occurrence: US)
  Receive Date: 20131227
  Receipt Date: 20140131
  Transmission Date: 20141002
  Serious: Yes (Hospitalization, Other)
  Sender: FDA-Public Use
  Company Number: US-GILEAD-2013-0090603

PATIENT
  Sex: Male
  Weight: 67.57 kg

DRUGS (20)
  1. RANEXA [Suspect]
     Indication: ANGINA PECTORIS
     Dosage: 500 MG, BID
     Route: 048
     Dates: start: 20121218, end: 20131214
  2. KLOR-CON [Concomitant]
  3. CARVEDILOL [Concomitant]
     Indication: HYPERTENSION
  4. PLAVIX [Concomitant]
     Indication: CORONARY ARTERY DISEASE
  5. PLAVIX [Concomitant]
     Indication: UNEVALUABLE EVENT
  6. ASPIRIN [Concomitant]
  7. ALBUTEROL                          /00139501/ [Concomitant]
  8. LEVOFLOXACIN [Concomitant]
  9. CEPHALEXIN                         /00145501/ [Concomitant]
  10. ALENDRONATE SODIUM [Concomitant]
  11. LISINOPRIL [Concomitant]
  12. CEPHALEXIN                         /00145502/ [Concomitant]
  13. ALLOPURINOL [Concomitant]
  14. ISOSORBIDE MONONITRATE [Concomitant]
  15. FUROSEMIDE [Concomitant]
  16. VITAMIN E NOS [Concomitant]
  17. VITAMIN D3 [Concomitant]
  18. FLOVENT [Concomitant]
  19. SEREVENT [Concomitant]
  20. FISH OIL [Concomitant]

REACTIONS (3)
  - Cardiac failure congestive [Unknown]
  - Malaise [Unknown]
  - Cough [Unknown]
